FAERS Safety Report 9528247 (Version 5)
Quarter: 2013Q4

REPORT INFORMATION
  Report Type: Spontaneous
  Country: PL (occurrence: PL)
  Receive Date: 20130917
  Receipt Date: 20131211
  Transmission Date: 20140711
  Serious: Yes (Hospitalization, Other)
  Sender: FDA-Public Use
  Company Number: PHHY2013PL101486

PATIENT
  Age: 59 Year
  Sex: Female
  Weight: 57 kg

DRUGS (3)
  1. TASIGNA [Suspect]
     Indication: CHRONIC MYELOID LEUKAEMIA
     Dosage: 400 MG, BID
     Route: 048
     Dates: start: 20111117, end: 20130817
  2. TASIGNA [Suspect]
     Dosage: 400 MG, BID
     Route: 048
     Dates: end: 20130820
  3. CIPROFLOXACIN [Concomitant]
     Indication: INFECTION

REACTIONS (13)
  - Liver disorder [Unknown]
  - Renal disorder [Unknown]
  - Liver injury [Recovered/Resolved]
  - Pleural effusion [Recovered/Resolved with Sequelae]
  - Pericardial effusion [Recovered/Resolved with Sequelae]
  - Lung infiltration [Unknown]
  - Jaundice [Unknown]
  - Pyrexia [Unknown]
  - Nausea [Unknown]
  - Fatigue [Unknown]
  - Atrial fibrillation [Unknown]
  - Ascites [Unknown]
  - General physical health deterioration [Unknown]
